FAERS Safety Report 8829599 (Version 2)
Quarter: 2012Q4

REPORT INFORMATION
  Report Type: 
  Country: US (occurrence: US)
  Receive Date: 20121008
  Receipt Date: 20121119
  Transmission Date: 20130627
  Serious: Yes (Other)
  Sender: FDA-Public Use
  Company Number: US-BAYER-2012-103828

PATIENT
  Age: 31 Year
  Sex: Female
  Weight: 158.73 kg

DRUGS (4)
  1. YASMIN [Suspect]
     Dosage: UNK
     Dates: start: 20110419, end: 20110824
  2. METFORMIN [Concomitant]
     Indication: DIABETES
     Dosage: UNK
     Dates: start: 2011
  3. SIMVASTATIN [Concomitant]
     Indication: CHOLESTEROLOSIS NOS
     Dosage: UNK
     Dates: start: 2011
  4. LISINOPRIL [Concomitant]
     Indication: BLOOD PRESSURE HIGH
     Dosage: UNK
     Dates: start: 2011

REACTIONS (8)
  - Cholecystitis [None]
  - Pain [None]
  - General physical health deterioration [None]
  - Injury [None]
  - Emotional distress [None]
  - Pain [None]
  - Anxiety [None]
  - Anhedonia [None]
